FAERS Safety Report 8890291 (Version 1)
Quarter: 2012Q4

REPORT INFORMATION
  Report Type: 
  Country: CO (occurrence: CO)
  Receive Date: 20121107
  Receipt Date: 20121107
  Transmission Date: 20130627
  Serious: Yes (Other)
  Sender: FDA-Public Use
  Company Number: CO-PFIZER INC-2012269218

PATIENT
  Age: 57 Year
  Sex: Female

DRUGS (1)
  1. LYRICA [Suspect]
     Indication: SURGERY
     Dosage: 150 mg, UNK
     Route: 048
     Dates: start: 201202

REACTIONS (4)
  - Intervertebral disc protrusion [Recovered/Resolved]
  - Pleurisy [Not Recovered/Not Resolved]
  - Gastrointestinal infection [Not Recovered/Not Resolved]
  - Influenza [Not Recovered/Not Resolved]
